FAERS Safety Report 4596630-7 (Version None)
Quarter: 2005Q1

REPORT INFORMATION
  Report Type: 
  Country: None (occurrence: None)
  Receive Date: 20050228
  Receipt Date: 20040810
  Transmission Date: 20050727
  Serious: No
  Sender: FDA-Public Use
  Company Number: 8689

PATIENT
  Age: 8 Year
  Sex: Female

DRUGS (2)
  1. METHOTREXATE [Suspect]
     Indication: JUVENILE ARTHRITIS
     Dosage: 20 MG WEEKLY, SC
     Route: 058
     Dates: start: 20020101
  2. DICLOFENAC [Concomitant]

REACTIONS (1)
  - DRUG INEFFECTIVE [None]
